FAERS Safety Report 6878863-X (Version None)
Quarter: 2010Q3

REPORT INFORMATION
  Report Type: 
  Country: None (occurrence: None)
  Receive Date: 20100728
  Receipt Date: 20100625
  Transmission Date: 20110219
  Serious: Yes (Hospitalization, Other)
  Sender: FDA-Public Use
  Company Number: PHEH2007US12133

PATIENT
  Sex: Female

DRUGS (14)
  1. ZOMETA [Suspect]
     Dosage: 4MG MONTHLY
     Dates: end: 20050101
  2. AREDIA [Suspect]
     Dosage: 30MG
  3. PREDNISONE [Concomitant]
  4. AROMASIN [Concomitant]
     Dosage: UNK
  5. RADIATION THERAPY [Concomitant]
  6. CHEMOTHERAPEUTICS NOS [Concomitant]
  7. LODINE [Concomitant]
  8. METHOTREXATE [Concomitant]
  9. MOBIC [Concomitant]
  10. ZIAC [Concomitant]
  11. TORADOL [Concomitant]
  12. LOVASTATIN [Concomitant]
  13. PRILOSEC [Suspect]
  14. VICODIN [Concomitant]

REACTIONS (78)
  - ABDOMINAL PAIN [None]
  - ABDOMINAL PAIN UPPER [None]
  - ANAEMIA [None]
  - ANEURYSM [None]
  - ANTINUCLEAR ANTIBODY POSITIVE [None]
  - ARTHRALGIA [None]
  - ASTHENIA [None]
  - BACK PAIN [None]
  - BENIGN BONE NEOPLASM [None]
  - BLOOD CHOLESTEROL INCREASED [None]
  - BLOOD GLUCOSE INCREASED [None]
  - BLOOD TRIGLYCERIDES INCREASED [None]
  - BONE OPERATION [None]
  - CATARACT [None]
  - CELLULITIS [None]
  - CHEST DISCOMFORT [None]
  - CHEST TUBE INSERTION [None]
  - CHILLS [None]
  - DECREASED APPETITE [None]
  - DEFORMITY [None]
  - DIARRHOEA [None]
  - DIZZINESS [None]
  - DYSPNOEA EXERTIONAL [None]
  - ERUCTATION [None]
  - FATIGUE [None]
  - FRACTURED SACRUM [None]
  - GASTRITIS [None]
  - GASTROOESOPHAGEAL REFLUX DISEASE [None]
  - GINGIVAL DISORDER [None]
  - GLYCOSYLATED HAEMOGLOBIN INCREASED [None]
  - HAEMATEMESIS [None]
  - HAEMOPTYSIS [None]
  - HIATUS HERNIA [None]
  - HIGH DENSITY LIPOPROTEIN DECREASED [None]
  - HYPOACUSIS [None]
  - INFECTION [None]
  - INSOMNIA [None]
  - INTERVERTEBRAL DISC DISORDER [None]
  - JOINT STIFFNESS [None]
  - JOINT SWELLING [None]
  - LOW DENSITY LIPOPROTEIN INCREASED [None]
  - LUMBAR SPINAL STENOSIS [None]
  - LUNG NEOPLASM [None]
  - MAMMOPLASTY [None]
  - MEDICAL DEVICE REMOVAL [None]
  - METASTASES TO BONE [None]
  - METASTASES TO LIVER [None]
  - METASTASES TO SPINE [None]
  - MUSCLE SPASMS [None]
  - MUSCULOSKELETAL DISCOMFORT [None]
  - MUSCULOSKELETAL PAIN [None]
  - MUSCULOSKELETAL STIFFNESS [None]
  - MYALGIA [None]
  - NAUSEA [None]
  - NECK PAIN [None]
  - NEOPLASM MALIGNANT [None]
  - NEUROPATHY PERIPHERAL [None]
  - ORAL PAIN [None]
  - ORAL SURGERY [None]
  - OSTEOARTHRITIS [None]
  - OSTEONECROSIS OF JAW [None]
  - OSTEOSCLEROSIS [None]
  - PAIN [None]
  - PAIN IN EXTREMITY [None]
  - PAIN IN JAW [None]
  - PELVIC PAIN [None]
  - PHYSICAL DISABILITY [None]
  - PRURITUS [None]
  - RASH [None]
  - REGURGITATION [None]
  - SPINAL OSTEOARTHRITIS [None]
  - SWELLING FACE [None]
  - TENDONITIS [None]
  - TOOTH EXTRACTION [None]
  - VERTIGO [None]
  - VOMITING [None]
  - VULVOVAGINAL PAIN [None]
  - WEIGHT DECREASED [None]
